FAERS Safety Report 8630154 (Version 2)
Quarter: 2013Q2

REPORT INFORMATION
  Report Type: Spontaneous
  Country: US (occurrence: US)
  Receive Date: 20120622
  Receipt Date: 20130617
  Transmission Date: 20140414
  Serious: Yes (Hospitalization, Disabling)
  Sender: FDA-Public Use
  Company Number: US-ASTRAZENECA-2012SE36465

PATIENT
  Age: 49 Year
  Sex: Male
  Weight: 79.4 kg

DRUGS (29)
  1. NEXIUM [Suspect]
     Indication: GASTROOESOPHAGEAL REFLUX DISEASE
     Route: 048
     Dates: start: 200807
  2. NEXIUM [Suspect]
     Indication: BARRETT^S OESOPHAGUS
     Route: 048
     Dates: start: 200807
  3. NEXIUM [Suspect]
     Indication: GASTROOESOPHAGEAL REFLUX DISEASE
     Route: 048
     Dates: start: 200807
  4. NEXIUM [Suspect]
     Indication: GASTROOESOPHAGEAL REFLUX DISEASE
     Route: 048
     Dates: start: 20081127
  5. NEXIUM [Suspect]
     Indication: BARRETT^S OESOPHAGUS
     Route: 048
     Dates: start: 20081127
  6. NEXIUM [Suspect]
     Indication: GASTROOESOPHAGEAL REFLUX DISEASE
     Route: 048
     Dates: start: 20081127
  7. PRILOSEC [Suspect]
     Indication: GASTROOESOPHAGEAL REFLUX DISEASE
     Route: 048
     Dates: start: 20010518, end: 200204
  8. PRILOSEC [Suspect]
     Indication: GASTROOESOPHAGEAL REFLUX DISEASE
     Route: 048
     Dates: start: 20010518, end: 200204
  9. ACIPHEX [Concomitant]
     Indication: GASTROOESOPHAGEAL REFLUX DISEASE
     Dates: start: 20020520, end: 200412
  10. ACIPHEX [Concomitant]
     Indication: GASTROOESOPHAGEAL REFLUX DISEASE
     Dates: start: 20020520, end: 200412
  11. PREVACID [Concomitant]
     Indication: GASTROOESOPHAGEAL REFLUX DISEASE
     Dates: start: 20041222, end: 200807
  12. PREVACID [Concomitant]
     Indication: GASTROOESOPHAGEAL REFLUX DISEASE
     Dates: start: 20041222, end: 200807
  13. ROLAIDS [Concomitant]
     Indication: GASTROOESOPHAGEAL REFLUX DISEASE
     Dosage: 4-8 DAILY
     Dates: start: 1998, end: 2011
  14. TUMS [Concomitant]
     Indication: GASTROOESOPHAGEAL REFLUX DISEASE
     Dates: start: 2011, end: 2013
  15. DYCYCLOMINE [Concomitant]
  16. CARAFATE [Concomitant]
  17. TRAMADOL [Concomitant]
  18. TAMSULOSIN [Concomitant]
  19. LIPITOR [Concomitant]
     Indication: BLOOD CHOLESTEROL ABNORMAL
  20. CELEBREX [Concomitant]
     Indication: ARTHRITIS
  21. ATORVASTATIN [Concomitant]
  22. KNOR-CON [Concomitant]
  23. MAGNESIUM [Concomitant]
  24. TYLENOL [Concomitant]
  25. HYDROCHLOROTHIAZIDE [Concomitant]
     Indication: HYPERTENSION
  26. LISINOPRIL [Concomitant]
     Indication: HYPERTENSION
  27. PROZAC [Concomitant]
     Indication: DEPRESSION
  28. FOSAMAX [Concomitant]
     Indication: OSTEOPOROSIS
  29. BYSTOLIC [Concomitant]
     Indication: PALPITATIONS

REACTIONS (19)
  - Chest pain [Unknown]
  - Prostate cancer [Unknown]
  - Abdominal pain [Unknown]
  - Depression [Unknown]
  - Osteoporosis [Unknown]
  - Multiple fractures [Unknown]
  - Intervertebral disc degeneration [Unknown]
  - Spinal column stenosis [Unknown]
  - Bone disorder [Unknown]
  - Scoliosis [Unknown]
  - Gastric disorder [Unknown]
  - Functional gastrointestinal disorder [Unknown]
  - Rib fracture [Unknown]
  - Arthritis [Unknown]
  - Bursitis [Unknown]
  - Heart rate increased [Unknown]
  - Bone pain [Unknown]
  - Blood magnesium decreased [Unknown]
  - Arthralgia [Unknown]
